FAERS Safety Report 19079140 (Version 1)
Quarter: 2021Q1

REPORT INFORMATION
  Report Type: Spontaneous
  Country: CZ (occurrence: CZ)
  Receive Date: 20210331
  Receipt Date: 20210331
  Transmission Date: 20210420
  Serious: Yes (Life-Threatening, Hospitalization, Other)
  Sender: FDA-Public Use
  Company Number: CZ-VALIDUS PHARMACEUTICALS LLC-CZ-2021VAL000246

PATIENT
  Age: 13 Year
  Sex: Male

DRUGS (5)
  1. MEROPENEM. [Suspect]
     Active Substance: MEROPENEM
     Indication: PANCREATITIS ACUTE
  2. MORPHINE [Concomitant]
     Active Substance: MORPHINE
     Indication: ANALGESIC THERAPY
  3. FUROSEMIDE. [Suspect]
     Active Substance: FUROSEMIDE
     Indication: ELECTROLYTE IMBALANCE
  4. NALBUPHINE [Concomitant]
     Active Substance: NALBUPHINE
     Indication: ANALGESIC THERAPY
  5. TRAMADOL. [Concomitant]
     Active Substance: TRAMADOL
     Indication: ANALGESIC THERAPY

REACTIONS (12)
  - Pancreatic cyst [Recovered/Resolved]
  - Hyperglycaemia [Recovered/Resolved]
  - Drug ineffective [Unknown]
  - Pleural effusion [Recovered/Resolved]
  - Cullen^s sign [Recovered/Resolved]
  - Pancreatitis necrotising [Recovered/Resolved]
  - Skin haemorrhage [Unknown]
  - Coagulopathy [Recovered/Resolved]
  - Ascites [Recovered/Resolved]
  - Multiple organ dysfunction syndrome [Recovered/Resolved]
  - Respiratory failure [Recovered/Resolved]
  - Grey Turner^s sign [Recovered/Resolved]
